FAERS Safety Report 10170367 (Version 1)
Quarter: 2014Q2

REPORT INFORMATION
  Report Type: Spontaneous
  Country: CA (occurrence: CA)
  Receive Date: 20140513
  Receipt Date: 20140513
  Transmission Date: 20141212
  Serious: Yes (Other)
  Sender: FDA-Public Use
  Company Number: ALCN2014CA002877

PATIENT
  Age: 49 Year
  Sex: Male

DRUGS (10)
  1. MOXIFLOXACIN [Suspect]
     Indication: PROPHYLAXIS
     Dosage: UNK
     Route: 047
  2. MOXIFLOXACIN [Suspect]
     Indication: FUNGAL INFECTION
  3. MOXIFLOXACIN [Suspect]
     Indication: OFF LABEL USE
  4. TOBRAMYCIN [Suspect]
     Indication: PROPHYLAXIS
     Dosage: UNK
     Route: 047
  5. TOBRAMYCIN [Suspect]
     Indication: OFF LABEL USE
  6. AMPHOTERICIN B [Concomitant]
     Indication: FUNGAL INFECTION
     Dosage: UNK
     Route: 065
  7. AMPHOTERICIN B [Concomitant]
     Dosage: UNK
     Route: 061
  8. VANCOMYCIN [Concomitant]
     Indication: FUNGAL INFECTION
     Dosage: UNK
     Route: 061
  9. ITRACONAZOLE [Concomitant]
     Indication: FUNGAL INFECTION
     Dosage: UNK
     Route: 048
  10. CIPROFLOXACIN [Concomitant]
     Indication: FUNGAL INFECTION
     Dosage: UNK
     Route: 048

REACTIONS (4)
  - Hypopyon [Recovering/Resolving]
  - Condition aggravated [Unknown]
  - Corneal disorder [Unknown]
  - Off label use [Unknown]
